FAERS Safety Report 14758550 (Version 1)
Quarter: 2018Q2

REPORT INFORMATION
  Report Type: Spontaneous
  Country: US (occurrence: US)
  Receive Date: 20180413
  Receipt Date: 20180413
  Transmission Date: 20180711
  Serious: No
  Sender: FDA-Public Use
  Company Number: US-NOVOPROD-588981

PATIENT
  Age: 35 Year
  Sex: Female

DRUGS (1)
  1. TRESIBA [Suspect]
     Active Substance: INSULIN DEGLUDEC
     Indication: PRODUCT USED FOR UNKNOWN INDICATION
     Dosage: 50 U, QD
     Route: 058
     Dates: start: 201801, end: 201802

REACTIONS (3)
  - Face oedema [Unknown]
  - Dyspnoea [Unknown]
  - Oedema peripheral [Unknown]
